FAERS Safety Report 17546585 (Version 1)
Quarter: 2020Q1

REPORT INFORMATION
  Report Type: Spontaneous
  Country: US (occurrence: US)
  Receive Date: 20200316
  Receipt Date: 20200316
  Transmission Date: 20200409
  Serious: Yes (Hospitalization)
  Sender: FDA-Public Use
  Company Number: US-CELGENEUS-USA-20200303838

PATIENT
  Sex: Male

DRUGS (2)
  1. THALOMID [Suspect]
     Active Substance: THALIDOMIDE
     Indication: PLASMA CELL MYELOMA
  2. THALOMID [Suspect]
     Active Substance: THALIDOMIDE
     Indication: BENIGN NEOPLASM
     Dosage: 100 MILLIGRAM
     Route: 048
     Dates: start: 20190911

REACTIONS (1)
  - Mass [Unknown]
